FAERS Safety Report 8500239-X (Version None)
Quarter: 2012Q3

REPORT INFORMATION
  Report Type: 
  Country: None (occurrence: None)
  Receive Date: 20120710
  Receipt Date: 20120705
  Transmission Date: 20120928
  Serious: Yes (Hospitalization)
  Sender: FDA-Public Use
  Company Number: PHHY2012CH058407

PATIENT
  Age: 37 Year
  Sex: Male
  Weight: 98 kg

DRUGS (2)
  1. BISOPROLOL FUMARATE [Suspect]
     Dosage: 5 MG, QD
     Route: 048
     Dates: start: 20120509
  2. CIPROFLOXACIN [Suspect]
     Indication: CAMPYLOBACTER GASTROENTERITIS
     Dosage: 1000 MG PER DAY
     Route: 048
     Dates: start: 20120509, end: 20120516

REACTIONS (6)
  - COORDINATION ABNORMAL [None]
  - MUSCULAR WEAKNESS [None]
  - BACK PAIN [None]
  - GAIT DISTURBANCE [None]
  - ARTHRALGIA [None]
  - GUILLAIN-BARRE SYNDROME [None]
